FAERS Safety Report 10785438 (Version 1)
Quarter: 2015Q1

REPORT INFORMATION
  Report Type: Spontaneous
  Country: NO (occurrence: None)
  Receive Date: 20150209
  Receipt Date: 20150209
  Transmission Date: 20150721
  Serious: Yes (Hospitalization)
  Sender: FDA-Public Use
  Company Number: NO-20150001

PATIENT
  Age: 49 Year
  Sex: Female

DRUGS (2)
  1. DOTAREM [Suspect]
     Active Substance: GADOTERATE MEGLUMINE
     Indication: NUCLEAR MAGNETIC RESONANCE IMAGING
     Route: 040
     Dates: start: 20150119, end: 20150119
  2. DOTAREM [Suspect]
     Active Substance: GADOTERATE MEGLUMINE
     Indication: BACK DISORDER
     Route: 040
     Dates: start: 20150119, end: 20150119

REACTIONS (4)
  - Anaphylactoid reaction [None]
  - Presyncope [None]
  - Nausea [None]
  - Chest discomfort [None]

NARRATIVE: CASE EVENT DATE: 20150119
